FAERS Safety Report 5100951-9 (Version None)
Quarter: 2006Q3

REPORT INFORMATION
  Report Type: 
  Country: None (occurrence: None)
  Receive Date: 20060911
  Receipt Date: 20060829
  Transmission Date: 20061208
  Serious: Yes (Other)
  Sender: FDA-Public Use
  Company Number: US-KINGPHARMUSA00001-K200601102

PATIENT
  Age: 83 Year
  Sex: Female

DRUGS (14)
  1. ALTACE [Suspect]
     Indication: RENAL FAILURE
     Dosage: UNK, UNK
     Route: 048
     Dates: start: 20060604, end: 20060610
  2. AMIODARONE HCL [Concomitant]
     Dosage: 200 MG, UNK
  3. CALCICHEW D3 [Concomitant]
     Dosage: UNK, UNK
  4. CYCLIZINE [Concomitant]
     Dosage: 150 MG, UNK
  5. FENTANYL [Concomitant]
     Dosage: UNK, UNK
  6. FOLIC ACID [Concomitant]
     Dosage: 5 MG, UNK
  7. FUROSEMIDE [Concomitant]
     Dosage: 120 MG, UNK
  8. GLUCONATE ION [Concomitant]
     Dosage: 300 MG, UNK
  9. MEBEVERINE [Concomitant]
     Dosage: 400 MG, UNK
  10. MOVICOL [Concomitant]
     Dosage: UNK, UNK
  11. PREDNISOLONE [Concomitant]
     Dosage: 5 MG, UNK
  12. PANTOPRAZOLE SODIUM [Concomitant]
     Dosage: 40 MG, UNK
  13. SPIRONOLACTONE [Concomitant]
     Dosage: 25 MG, UNK
  14. WARFARIN SODIUM [Concomitant]
     Dosage: UNK, UNK

REACTIONS (3)
  - CONFUSIONAL STATE [None]
  - DERMATITIS BULLOUS [None]
  - MOBILITY DECREASED [None]
